FAERS Safety Report 21229740 (Version 4)
Quarter: 2022Q4

REPORT INFORMATION
  Report Type: Spontaneous
  Country: US (occurrence: US)
  Receive Date: 20220818
  Receipt Date: 20221014
  Transmission Date: 20230112
  Serious: No
  Sender: FDA-Public Use
  Company Number: US-BRISTOL-MYERS SQUIBB COMPANY-2022-092387

PATIENT
  Age: 67 Year
  Sex: Female

DRUGS (4)
  1. REVLIMID [Suspect]
     Active Substance: LENALIDOMIDE
     Indication: Myelodysplastic syndrome
     Route: 048
     Dates: start: 20220630
  2. REVLIMID [Suspect]
     Active Substance: LENALIDOMIDE
     Indication: Plasma cell myeloma
     Dosage: ONCE DAILY
     Route: 048
     Dates: start: 202207
  3. REVLIMID [Suspect]
     Active Substance: LENALIDOMIDE
     Dosage: FREQ : 5 MG EVERY OTHER DAY
     Route: 048
     Dates: start: 20220623
  4. REVLIMID [Suspect]
     Active Substance: LENALIDOMIDE
     Dosage: EVERY OTHER DAY
     Route: 048
     Dates: start: 20221005

REACTIONS (12)
  - Constipation [Unknown]
  - Fatigue [Unknown]
  - Chest pain [Unknown]
  - Dizziness [Recovered/Resolved]
  - Rash [Unknown]
  - Condition aggravated [Unknown]
  - Dyspepsia [Unknown]
  - Taste disorder [Unknown]
  - Discomfort [Unknown]
  - Dyschezia [Unknown]
  - Asthenia [Unknown]
  - Intentional product use issue [Unknown]
